FAERS Safety Report 19457023 (Version 1)
Quarter: 2021Q2

REPORT INFORMATION
  Report Type: Spontaneous
  Country: JP (occurrence: JP)
  Receive Date: 20210624
  Receipt Date: 20210624
  Transmission Date: 20210717
  Serious: Yes (Other)
  Sender: FDA-Public Use
  Company Number: JP-PFIZER INC-2021576512

PATIENT
  Age: 66 Year
  Sex: Male

DRUGS (5)
  1. OXALIPLATIN. [Suspect]
     Active Substance: OXALIPLATIN
     Indication: METASTASES TO BONE MARROW
     Dosage: UNK, CYCLIC (MFOLFOX6 THERAPY)
  2. FLUOROURACIL. [Suspect]
     Active Substance: FLUOROURACIL
     Indication: METASTASES TO BONE MARROW
     Dosage: UNK, CYCLIC (MFOLFOX6 THERAPY)
  3. PANITUMUMAB [Concomitant]
     Active Substance: PANITUMUMAB
     Indication: METASTASES TO BONE MARROW
     Dosage: 380 MG/COURSE
  4. PEGFILGRASTIM [Concomitant]
     Active Substance: PEGFILGRASTIM
     Indication: METASTASES TO BONE MARROW
     Dosage: 3.6 MG
  5. CALCIUM FOLINATE [Suspect]
     Active Substance: LEUCOVORIN CALCIUM
     Indication: METASTASES TO BONE MARROW
     Dosage: UNK, CYCLIC (MFOLFOX6 THERAPY)

REACTIONS (1)
  - Neuropathy peripheral [Unknown]
